FAERS Safety Report 8854554 (Version 1)
Quarter: 2012Q4

REPORT INFORMATION
  Report Type: 
  Country: US (occurrence: US)
  Receive Date: 20121023
  Receipt Date: 20121023
  Transmission Date: 20130627
  Serious: No
  Sender: FDA-Public Use
  Company Number: US-VERTEX PHARMACEUTICAL INC.-2012-022948

PATIENT
  Sex: Female

DRUGS (1)
  1. INCIVEK [Suspect]
     Indication: HEPATITIS C
     Dosage: UNK
     Route: 048
     Dates: end: 201204

REACTIONS (6)
  - Renal disorder [Unknown]
  - Dehydration [Unknown]
  - Decreased appetite [Unknown]
  - Rash [Unknown]
  - Anaemia [Unknown]
  - Vomiting [Unknown]
